FAERS Safety Report 5337258-0 (Version None)
Quarter: 2007Q2

REPORT INFORMATION
  Report Type: 
  Country: None (occurrence: None)
  Receive Date: 20070315
  Receipt Date: 20060921
  Transmission Date: 20071010
  Serious: Yes (Other)
  Sender: FDA-Public Use
  Company Number: PHEH2006US12221

PATIENT

DRUGS (2)
  1. TRILEPTAL [Suspect]
  2. CONCERTA [Concomitant]

REACTIONS (1)
  - EXTRAPYRAMIDAL DISORDER [None]
